FAERS Safety Report 7537624-9 (Version None)
Quarter: 2011Q2

REPORT INFORMATION
  Report Type: 
  Country: None (occurrence: None)
  Receive Date: 20110603
  Receipt Date: 20110519
  Transmission Date: 20111010
  Serious: Yes (Other)
  Sender: FDA-Public Use
  Company Number: 2011MA006133

PATIENT
  Age: 8 Year
  Sex: Male

DRUGS (3)
  1. VALPROIC ACID [Concomitant]
  2. CARBAMAZEPINE [Suspect]
     Indication: CONVULSION
     Dosage: 600 MG, OD;
  3. PHENOBARBITAL TAB [Concomitant]

REACTIONS (3)
  - HYPERAMMONAEMIA [None]
  - GRAND MAL CONVULSION [None]
  - COMPLEX PARTIAL SEIZURES [None]
